FAERS Safety Report 8072005-3 (Version None)
Quarter: 2012Q1

REPORT INFORMATION
  Report Type: 
  Country: None (occurrence: None)
  Receive Date: 20120126
  Receipt Date: 20120124
  Transmission Date: 20120608
  Serious: Yes (Other)
  Sender: FDA-Public Use
  Company Number: US-BAYER-2012-008010

PATIENT
  Age: 62 Year
  Sex: Female

DRUGS (1)
  1. CIPROFLOXACIN [Suspect]
     Dosage: UNK

REACTIONS (4)
  - DRUG HYPERSENSITIVITY [None]
  - DYSPNOEA [None]
  - BLOOD PRESSURE INCREASED [None]
  - RASH [None]
